FAERS Safety Report 7285943-6 (Version None)
Quarter: 2011Q1

REPORT INFORMATION
  Report Type: 
  Country: None (occurrence: None)
  Receive Date: 20110210
  Receipt Date: 20110131
  Transmission Date: 20110831
  Serious: Yes (Hospitalization)
  Sender: FDA-Public Use
  Company Number: US-MERCK-0705USA04175

PATIENT
  Age: 53 Year
  Sex: Female
  Weight: 57 kg

DRUGS (2)
  1. FOSAMAX [Suspect]
     Indication: OSTEOPOROSIS
     Route: 048
     Dates: start: 20040408, end: 20060501
  2. PREMARIN [Concomitant]
     Route: 065
     Dates: start: 19970101

REACTIONS (50)
  - OSTEOPENIA [None]
  - VISUAL ACUITY REDUCED [None]
  - LYMPHADENOPATHY [None]
  - TOOTH LOSS [None]
  - HYPOTENSION [None]
  - ADVERSE DRUG REACTION [None]
  - DENTAL CARIES [None]
  - JOINT EFFUSION [None]
  - HERPES ZOSTER [None]
  - GINGIVAL BLEEDING [None]
  - RHEUMATOID ARTHRITIS [None]
  - ARTHRALGIA [None]
  - JAW DISORDER [None]
  - ANAEMIA OF CHRONIC DISEASE [None]
  - FALL [None]
  - INFECTION [None]
  - BREAST MASS [None]
  - CHEST PAIN [None]
  - ADRENAL INSUFFICIENCY [None]
  - ABDOMINAL PAIN [None]
  - GASTRITIS EROSIVE [None]
  - MUSCULOSKELETAL PAIN [None]
  - POOR DENTAL CONDITION [None]
  - ANGIOPATHY [None]
  - URINARY TRACT INFECTION [None]
  - IRON DEFICIENCY ANAEMIA [None]
  - HEADACHE [None]
  - SEPSIS [None]
  - MUSCLE INJURY [None]
  - HYPERCHOLESTEROLAEMIA [None]
  - GINGIVAL DISORDER [None]
  - GENITAL HERPES [None]
  - MUSCULAR WEAKNESS [None]
  - UPPER RESPIRATORY TRACT INFECTION [None]
  - CEREBRAL CALCIFICATION [None]
  - COLITIS [None]
  - GROIN PAIN [None]
  - CONJUNCTIVAL HAEMORRHAGE [None]
  - STRESS [None]
  - PERIODONTAL DISEASE [None]
  - ORAL INFECTION [None]
  - HYPERTENSION [None]
  - GASTRIC INFECTION [None]
  - ATELECTASIS [None]
  - FOOD POISONING [None]
  - CORONARY ARTERY DISEASE [None]
  - BURSITIS [None]
  - LOWER GASTROINTESTINAL HAEMORRHAGE [None]
  - PAIN IN JAW [None]
  - VISION BLURRED [None]
